FAERS Safety Report 6615449-6 (Version None)
Quarter: 2010Q1

REPORT INFORMATION
  Report Type: 
  Country: None (occurrence: None)
  Receive Date: 20100305
  Receipt Date: 20100115
  Transmission Date: 20100710
  Serious: Yes (Hospitalization)
  Sender: FDA-Public Use
  Company Number: US-JNJFOC-20091007844

PATIENT
  Sex: Female

DRUGS (16)
  1. LEVAQUIN [Suspect]
     Indication: EAR INFECTION
     Route: 048
  2. REVLIMID [Suspect]
     Indication: MYELODYSPLASTIC SYNDROME
     Route: 048
     Dates: end: 20090616
  3. REVLIMID [Suspect]
     Route: 048
     Dates: end: 20090616
  4. REVLIMID [Suspect]
     Route: 048
     Dates: end: 20090616
  5. HYZAAR [Concomitant]
     Dosage: 50 TO 12.5 MG
     Route: 048
  6. ASPIRIN [Concomitant]
     Indication: THROMBOSIS PROPHYLAXIS
     Route: 048
  7. CELEXA [Concomitant]
     Indication: DEPRESSION
     Route: 048
  8. DIAZEPAM [Concomitant]
     Indication: ANXIETY
     Route: 048
  9. ERGOCALCIFEROL [Concomitant]
     Indication: VITAMIN D DEFICIENCY
     Route: 048
  10. MECLOZINE [Concomitant]
     Indication: VERTIGO
     Route: 048
  11. MECLOZINE [Concomitant]
     Indication: NAUSEA
     Route: 048
  12. METANX [Concomitant]
     Route: 048
  13. NAPROXEN [Concomitant]
     Route: 048
  14. PHENERGAN HCL [Concomitant]
     Indication: NAUSEA
     Route: 065
  15. LOSARTAN POTASSIUM [Concomitant]
     Route: 065
  16. VITAMIN PREPARATION COMPOUND [Concomitant]
     Route: 065

REACTIONS (5)
  - BLOOD COUNT ABNORMAL [None]
  - DEHYDRATION [None]
  - DIARRHOEA [None]
  - NAUSEA [None]
  - VOMITING [None]
